FAERS Safety Report 23206209 (Version 1)
Quarter: 2023Q4

REPORT INFORMATION
  Report Type: Report from Study
  Country: US (occurrence: US)
  Receive Date: 20231120
  Receipt Date: 20231120
  Transmission Date: 20240110
  Serious: Yes (Hospitalization)
  Sender: FDA-Public Use
  Company Number: US-ARGENX-2023-ARGX-US003195

PATIENT

DRUGS (1)
  1. VYVGART HYTRULO [Suspect]
     Active Substance: EFGARTIGIMOD ALFA\HYALURONIDASE-QVFC
     Indication: Product used for unknown indication
     Route: 058

REACTIONS (5)
  - Lumbar vertebral fracture [Recovering/Resolving]
  - Muscular weakness [Unknown]
  - Iron deficiency anaemia [Recovered/Resolved]
  - Treatment delayed [Unknown]
  - Fall [Unknown]

NARRATIVE: CASE EVENT DATE: 20230913
